FAERS Safety Report 12841222 (Version 5)
Quarter: 2016Q4

REPORT INFORMATION
  Report Type: Spontaneous
  Country: US (occurrence: US)
  Receive Date: 20161012
  Receipt Date: 20161214
  Transmission Date: 20170207
  Serious: No
  Sender: FDA-Public Use
  Company Number: US-PFIZER INC-2016381789

PATIENT
  Age: 73 Year
  Sex: Female
  Weight: 74.84 kg

DRUGS (17)
  1. CYMBALTA [Concomitant]
     Active Substance: DULOXETINE HYDROCHLORIDE
     Indication: DEPRESSION
     Dosage: 20 MG, DAILY (1 TABLET (OF 20 MG) CAPSULE DELAYED RELEASE PARTICLES ORAL DAILY FOR 30 DAYS)
     Route: 048
  2. VICODIN [Concomitant]
     Active Substance: ACETAMINOPHEN\HYDROCODONE BITARTRATE
     Dosage: 1 DF, EVERY 4 HRS (5/325 MG, TAKES EVERY 4 HOURS; ABOUT 3 TIMES A DAY)
  3. IBRANCE [Suspect]
     Active Substance: PALBOCICLIB
     Dosage: 100 MG, 1X/DAY
     Route: 048
     Dates: start: 2016
  4. FEMARA [Concomitant]
     Active Substance: LETROZOLE
     Indication: BONE CANCER
     Dosage: 2.5 MG, 1X/DAY (2.5 MG TABLET ONCE A DAY, TAKES WITH THE IBRANCE)
  5. IBRANCE [Suspect]
     Active Substance: PALBOCICLIB
     Indication: BREAST CANCER METASTATIC
     Dosage: 100 MG, CYCLIC (1 TABLET EVERY DAY X 21 DAYS WITH 1 WEEK OFF)
  6. XANAX [Concomitant]
     Active Substance: ALPRAZOLAM
     Dosage: 0.25 MG, PRN (1 (0.25 MG) TABLET ORAL DAILY FOR 30 DAYS)
     Route: 048
  7. METOPROLOL. [Concomitant]
     Active Substance: METOPROLOL
     Indication: BLOOD PRESSURE ABNORMAL
     Dosage: 100 MG, 1X/DAY (5/325 MG, TAKES EVERY 4 HOURS; ABOUT 3 TIMES A DAY)
  8. IBRANCE [Suspect]
     Active Substance: PALBOCICLIB
     Dosage: UNK
  9. FENTANYL. [Concomitant]
     Active Substance: FENTANYL
     Dosage: 12 UG, UNK (12 UG (OF 12 (12.5) MCG/HR) PATCH 72 HR TRANSDERMAL Q 72 HOURS FOR 30 DAYS)
     Route: 062
  10. ACETAMINOPHEN W/HYDROCODONE [Concomitant]
     Active Substance: ACETAMINOPHEN\HYDROCODONE
     Dosage: 1 DF, AS NEEDED (1 TABLET (OF 5-325 MG) ORAL Q 4 HOURS FOR 30 DAYS PRN)
     Route: 048
  11. PROCHLORPERAZINE MALEATE. [Concomitant]
     Active Substance: PROCHLORPERAZINE MALEATE
     Dosage: 10 MG, AS NEEDED (1 (10 MG) TABLET ORAL Q 6 HOURS  PRN)
     Route: 048
  12. CALCIUM [Concomitant]
     Active Substance: CALCIUM
     Dosage: 500 MG, DAILY
     Route: 048
  13. LISINOPRIL. [Concomitant]
     Active Substance: LISINOPRIL
     Indication: BLOOD PRESSURE ABNORMAL
     Dosage: 10 MG, DAILY (1(10 MG) TABLET ORAL DAILY)
     Route: 048
  14. MONOPRIL HCT [Concomitant]
     Dosage: 20 MG, DAILY (1 (20 MG) TABLET ORAL DAILY)
     Route: 048
  15. CAPECITABINE. [Concomitant]
     Active Substance: CAPECITABINE
     Dosage: 500 MG, B.I.D. (2 (500 MG) TABLET ORAL B.I.D. FOR 14 DAYS)
     Route: 048
  16. LASIX [Concomitant]
     Active Substance: FUROSEMIDE
     Dosage: 20 MG, PRN (1 (20 MG) TABLET ORAL DAILY)
     Route: 048
  17. VICODIN [Concomitant]
     Active Substance: ACETAMINOPHEN\HYDROCODONE BITARTRATE
     Indication: PAIN
     Dosage: 1 DF, B.I.D. (1 (5-500 MG) TABLET)
     Route: 048

REACTIONS (2)
  - Drug dose omission [Unknown]
  - White blood cell count decreased [Unknown]

NARRATIVE: CASE EVENT DATE: 20161006
